FAERS Safety Report 9957625 (Version 2)
Quarter: 2014Q1

REPORT INFORMATION
  Report Type: Report from Study
  Country: US (occurrence: US)
  Receive Date: 20140304
  Receipt Date: 20140304
  Transmission Date: 20141002
  Serious: Yes (Other)
  Sender: FDA-Public Use
  Company Number: US-ABBVIE-13P-163-1029995-00

PATIENT
  Age: 59 Year
  Sex: Male

DRUGS (7)
  1. HUMIRA [Suspect]
     Indication: COLITIS ULCERATIVE
     Dosage: LOADING DOSE
     Dates: start: 20121228, end: 20121228
  2. HUMIRA [Suspect]
  3. METOPROLOL [Concomitant]
     Indication: HYPERTENSION
     Dosage: DAILY
  4. LISINOPRIL [Concomitant]
     Indication: HYPERTENSION
     Dosage: DAILY
  5. UCERIS [Concomitant]
     Indication: CROHN^S DISEASE
  6. ASACAL HD [Concomitant]
     Indication: CROHN^S DISEASE
  7. FLOMAX [Concomitant]
     Indication: PROSTATOMEGALY

REACTIONS (6)
  - Cerebrovascular accident [Unknown]
  - Headache [Not Recovered/Not Resolved]
  - Nausea [Not Recovered/Not Resolved]
  - Blood pressure increased [Unknown]
  - Muscular weakness [Unknown]
  - Pain [Unknown]
